FAERS Safety Report 11624513 (Version 8)
Quarter: 2016Q2

REPORT INFORMATION
  Report Type: Report from Study
  Country: CA (occurrence: CA)
  Receive Date: 20151013
  Receipt Date: 20160507
  Transmission Date: 20160815
  Serious: Yes (Other)
  Sender: FDA-Public Use
  Company Number: PHHY2014CA150722

PATIENT
  Age: 78 Year
  Sex: Female

DRUGS (2)
  1. SANDOSTATIN LAR DEPOT [Suspect]
     Active Substance: OCTREOTIDE ACETATE
     Dosage: 40 MG, QMO
     Route: 030
  2. SANDOSTATIN LAR DEPOT [Suspect]
     Active Substance: OCTREOTIDE ACETATE
     Indication: CARCINOID TUMOUR PULMONARY
     Dosage: 20 MG, QMO
     Route: 030
     Dates: start: 20141112

REACTIONS (25)
  - Feeling abnormal [Unknown]
  - Osteoarthritis [Not Recovered/Not Resolved]
  - Malaise [Unknown]
  - Peripheral swelling [Unknown]
  - Influenza [Unknown]
  - Nasopharyngitis [Unknown]
  - Musculoskeletal stiffness [Unknown]
  - Pain in extremity [Unknown]
  - Computerised tomogram abnormal [Unknown]
  - Fatigue [Unknown]
  - Lung neoplasm [Unknown]
  - Vein disorder [Unknown]
  - Blood pressure systolic increased [Unknown]
  - Alopecia [Unknown]
  - Body temperature decreased [Unknown]
  - Productive cough [Unknown]
  - Contusion [Unknown]
  - Musculoskeletal pain [Unknown]
  - Pain [Unknown]
  - Haemoptysis [Unknown]
  - Gastrointestinal disorder [Unknown]
  - Cough [Unknown]
  - Nausea [Unknown]
  - Arthritis [Unknown]
  - Joint range of motion decreased [Unknown]

NARRATIVE: CASE EVENT DATE: 20141112
